FAERS Safety Report 20413043 (Version 2)
Quarter: 2022Q1

REPORT INFORMATION
  Report Type: Report from Study
  Country: US (occurrence: US)
  Receive Date: 20220201
  Receipt Date: 20220215
  Transmission Date: 20220423
  Serious: Yes (Death)
  Sender: FDA-Public Use
  Company Number: US-ABBVIE-22K-163-4259433-00

PATIENT
  Sex: Female

DRUGS (4)
  1. CREON [Suspect]
     Active Substance: PANCRELIPASE AMYLASE\PANCRELIPASE LIPASE\PANCRELIPASE PROTEASE
     Indication: Product used for unknown indication
     Dosage: TWO CAPSULES PER MEAL AND ONE PER SNACKS
     Route: 048
     Dates: start: 202105, end: 20220110
  2. COVID-19 VACCINE [Concomitant]
     Indication: COVID-19 immunisation
     Route: 030
  3. COVID-19 VACCINE [Concomitant]
     Route: 030
  4. COVID-19 VACCINE [Concomitant]
     Route: 030

REACTIONS (2)
  - Pancreatic carcinoma [Fatal]
  - Drug ineffective [Unknown]
